FAERS Safety Report 16182826 (Version 2)
Quarter: 2019Q2

REPORT INFORMATION
  Report Type: Spontaneous
  Country: US (occurrence: US)
  Receive Date: 20190411
  Receipt Date: 20190508
  Transmission Date: 20190711
  Serious: No
  Sender: FDA-Public Use
  Company Number: US-ASTRAZENECA-2019SE42198

PATIENT
  Age: 72 Year
  Sex: Female
  Weight: 106.6 kg

DRUGS (2)
  1. LIPITOR [Concomitant]
     Active Substance: ATORVASTATIN CALCIUM
     Indication: BLOOD CHOLESTEROL
     Route: 048
  2. SYMBICORT [Suspect]
     Active Substance: BUDESONIDE\FORMOTEROL FUMARATE DIHYDRATE
     Indication: PNEUMONIA
     Dosage: 160-4.5 MCG 2 PUFFS TWICE A DAY
     Route: 055
     Dates: start: 2016

REACTIONS (8)
  - Nasopharyngitis [Recovering/Resolving]
  - Device malfunction [Not Recovered/Not Resolved]
  - Cough [Recovering/Resolving]
  - Product dose omission [Not Recovered/Not Resolved]
  - Device failure [Unknown]
  - Oropharyngeal pain [Recovering/Resolving]
  - Off label use [Unknown]
  - Product use in unapproved indication [Not Recovered/Not Resolved]

NARRATIVE: CASE EVENT DATE: 2019
